FAERS Safety Report 8186484-4 (Version None)
Quarter: 2012Q1

REPORT INFORMATION
  Report Type: 
  Country: None (occurrence: None)
  Receive Date: 20120306
  Receipt Date: 20120227
  Transmission Date: 20120608
  Serious: Yes (Other)
  Sender: FDA-Public Use
  Company Number: AU-JNJFOC-20120206278

PATIENT
  Sex: Male

DRUGS (9)
  1. STELARA [Suspect]
     Route: 058
     Dates: start: 20110610
  2. AMIODARONE HCL [Concomitant]
     Indication: ATRIAL FIBRILLATION
  3. STELARA [Suspect]
     Route: 058
     Dates: start: 20110221
  4. STELARA [Suspect]
     Route: 058
     Dates: start: 20111202
  5. MICARDIS [Concomitant]
     Indication: HYPERTENSION
  6. STELARA [Suspect]
     Route: 058
     Dates: start: 20100619
  7. STELARA [Suspect]
     Route: 058
     Dates: start: 20101008
  8. STELARA [Suspect]
     Indication: PSORIASIS
     Route: 058
     Dates: start: 20100718
  9. STELARA [Suspect]
     Route: 058
     Dates: start: 20110912

REACTIONS (1)
  - ANKLE OPERATION [None]
